FAERS Safety Report 4379110-3 (Version None)
Quarter: 2004Q2

REPORT INFORMATION
  Report Type: 
  Country: None (occurrence: None)
  Receive Date: 20040610
  Receipt Date: 20040601
  Transmission Date: 20050107
  Serious: Yes (Other)
  Sender: FDA-Public Use
  Company Number: NL-JNJFOC-20040600892

PATIENT
  Age: 21 Year
  Sex: Female

DRUGS (2)
  1. CILEST (NORGESTIMATE/ETHINYL ESTRADIOL) TABLETS [Suspect]
     Indication: CONTRACEPTION
     Dosage: ORAL
     Route: 048
     Dates: start: 20031201
  2. CLARITHROMYCIN [Suspect]
     Indication: OTITIS MEDIA
     Dosage: 500 MG, 1 IN 1 DAY
     Dates: start: 20040422, end: 20040429

REACTIONS (2)
  - DRUG INTERACTION [None]
  - PREGNANCY ON ORAL CONTRACEPTIVE [None]
